FAERS Safety Report 9594128 (Version 1)
Quarter: 2013Q3

REPORT INFORMATION
  Report Type: Spontaneous
  Country: US (occurrence: None)
  Receive Date: 20130930
  Receipt Date: 20130930
  Transmission Date: 20140515
  Serious: No
  Sender: FDA-Public Use
  Company Number: 1000047761

PATIENT
  Age: 81 Year
  Sex: Male

DRUGS (4)
  1. LINZESS [Suspect]
     Indication: CONSTIPATION
     Route: 048
  2. FAMOTIDINE (FAMOTIDINE) (FAMOTIDINE) [Concomitant]
  3. LISINOPRIL (LISINOPRIL) (LISINOPRIL) [Concomitant]
  4. MELOXICAM (MELOXICAM) (MELOXICAM) [Concomitant]

REACTIONS (1)
  - Diarrhoea [None]
